FAERS Safety Report 6349262-4 (Version None)
Quarter: 2009Q3

REPORT INFORMATION
  Report Type: 
  Country: None (occurrence: None)
  Receive Date: 20090911
  Receipt Date: 20090908
  Transmission Date: 20100115
  Serious: Yes (Other)
  Sender: FDA-Public Use
  Company Number: A0800131A

PATIENT
  Age: 8 Year
  Sex: Male
  Weight: 30.9 kg

DRUGS (4)
  1. ADVAIR HFA [Suspect]
     Dosage: 1PUFF TWICE PER DAY
     Route: 055
     Dates: start: 20081101, end: 20090728
  2. ZYRTEC [Concomitant]
     Indication: MULTIPLE ALLERGIES
     Dosage: 10MG PER DAY
     Route: 048
     Dates: start: 20081001
  3. ALBUTEROL [Concomitant]
     Indication: ASTHMA
     Dosage: 3PUFF AS REQUIRED
     Route: 055
     Dates: start: 20081001
  4. TRIAMCINOLONE [Concomitant]
     Indication: ECZEMA
     Route: 061
     Dates: start: 20081001

REACTIONS (1)
  - PAPILLOEDEMA [None]
